FAERS Safety Report 5150397-2 (Version None)
Quarter: 2006Q4

REPORT INFORMATION
  Report Type: 
  Country: None (occurrence: None)
  Receive Date: 20061109
  Receipt Date: 20061109
  Transmission Date: 20070319
  Serious: Yes (Other)
  Sender: FDA-Public Use
  Company Number: None

PATIENT
  Age: 17 Year
  Sex: Male
  Weight: 70 kg

DRUGS (1)
  1. ACETADOTE [Suspect]
     Indication: OVERDOSE
     Dosage: 3500 MG/ 500 ML ONCE OVER 4 HOURS IV
     Route: 042
     Dates: start: 20061108, end: 20061108

REACTIONS (3)
  - HEART RATE INCREASED [None]
  - INFUSION RELATED REACTION [None]
  - SINOATRIAL BLOCK [None]
